FAERS Safety Report 17830480 (Version 1)
Quarter: 2020Q2

REPORT INFORMATION
  Report Type: Spontaneous
  Country: CA (occurrence: CA)
  Receive Date: 20200527
  Receipt Date: 20200527
  Transmission Date: 20200714
  Serious: Yes (Other)
  Sender: FDA-Public Use
  Company Number: CA-AMGEN-CANSP2020083489

PATIENT
  Age: 58 Year
  Sex: Female

DRUGS (8)
  1. PALBOCICLIB [Suspect]
     Active Substance: PALBOCICLIB
     Indication: BREAST CANCER
     Dosage: UNK
     Route: 065
  2. LETROZOLE. [Suspect]
     Active Substance: LETROZOLE
     Indication: BREAST CANCER
     Dosage: UNK
     Route: 048
  3. AFINITOR [Suspect]
     Active Substance: EVEROLIMUS
     Dosage: 10 MILLIGRAM, QD
     Route: 048
  4. XGEVA [Suspect]
     Active Substance: DENOSUMAB
     Indication: BREAST CANCER
     Dosage: UNK
     Route: 058
  5. CALCIUM [Concomitant]
     Active Substance: CALCIUM
  6. ERGOCALCIFEROL. [Concomitant]
     Active Substance: ERGOCALCIFEROL
  7. AFINITOR [Suspect]
     Active Substance: EVEROLIMUS
     Indication: BREAST CANCER
     Dosage: 7.5 MILLIGRAM
     Route: 048
  8. MAGNESIUM [Concomitant]
     Active Substance: MAGNESIUM

REACTIONS (14)
  - Pain [Not Recovered/Not Resolved]
  - Stomatitis [Not Recovered/Not Resolved]
  - Breast pain [Not Recovered/Not Resolved]
  - Bone pain [Not Recovered/Not Resolved]
  - Drug ineffective [Not Recovered/Not Resolved]
  - Malignant neoplasm progression [Not Recovered/Not Resolved]
  - Dysuria [Not Recovered/Not Resolved]
  - Breast cancer [Not Recovered/Not Resolved]
  - Lymphadenopathy [Not Recovered/Not Resolved]
  - Pain in extremity [Not Recovered/Not Resolved]
  - Lymph node pain [Not Recovered/Not Resolved]
  - Movement disorder [Not Recovered/Not Resolved]
  - Pollakiuria [Not Recovered/Not Resolved]
  - Rash [Not Recovered/Not Resolved]
